FAERS Safety Report 23088674 (Version 1)
Quarter: 2023Q4

REPORT INFORMATION
  Report Type: Report from Study
  Country: US (occurrence: US)
  Receive Date: 20231020
  Receipt Date: 20231020
  Transmission Date: 20240110
  Serious: Yes (Hospitalization)
  Sender: FDA-Public Use
  Company Number: US-ACADIA PHARMACEUTICALS INC.-ACA-2023-PIM-004684

PATIENT
  Sex: Male

DRUGS (5)
  1. NUPLAZID [Suspect]
     Active Substance: PIMAVANSERIN TARTRATE
     Indication: Parkinson^s disease
     Dosage: 34 MILLIGRAM, QD
     Route: 048
     Dates: start: 202205
  2. DONEPEZIL [Concomitant]
     Active Substance: DONEPEZIL
  3. AMLODIPINE [Concomitant]
     Active Substance: AMLODIPINE BESYLATE
  4. MEMANTINE [Concomitant]
     Active Substance: MEMANTINE
  5. CARBIDOPA [Concomitant]
     Active Substance: CARBIDOPA

REACTIONS (6)
  - Hand fracture [Unknown]
  - Fall [Unknown]
  - Grip strength decreased [Unknown]
  - Upper limb fracture [Unknown]
  - Balance disorder [Unknown]
  - Fall [Unknown]
